FAERS Safety Report 8273656-3 (Version None)
Quarter: 2012Q2

REPORT INFORMATION
  Report Type: 
  Country: None (occurrence: None)
  Receive Date: 20120411
  Receipt Date: 20120313
  Transmission Date: 20120825
  Serious: No
  Sender: FDA-Public Use
  Company Number: US-TEVA-324154USA

PATIENT
  Age: 26 Year
  Sex: Female

DRUGS (3)
  1. SPIRONOLACTONE [Concomitant]
     Dosage: 50 MILLIGRAM;
     Route: 048
  2. NUVIGIL [Suspect]
     Indication: NARCOLEPSY
     Dosage: 150 MILLIGRAM;
     Route: 048
     Dates: start: 20120201, end: 20120201
  3. MULTI-VITAMIN [Concomitant]
     Route: 048

REACTIONS (1)
  - RASH PRURITIC [None]
